FAERS Safety Report 6702583-5 (Version None)
Quarter: 2010Q2

REPORT INFORMATION
  Report Type: 
  Country: None (occurrence: None)
  Receive Date: 20100429
  Receipt Date: 20100426
  Transmission Date: 20101027
  Serious: Yes (Other)
  Sender: FDA-Public Use
  Company Number: US-ELI_LILLY_AND_COMPANY-US201004003822

PATIENT
  Age: 78 Year
  Sex: Male

DRUGS (4)
  1. HUMALOG [Suspect]
     Dosage: 4 U, EACH MORNING
     Dates: start: 20100101
  2. HUMALOG [Suspect]
     Dosage: 6 U, OTHER
     Dates: start: 20100101
  3. HUMALOG [Suspect]
     Dosage: 2 U, EACH EVENING
     Dates: start: 20100101
  4. LANTUS [Concomitant]
     Indication: TYPE 2 DIABETES MELLITUS
     Dosage: 27 U, EACH MORNING
     Dates: start: 20100106

REACTIONS (3)
  - CYANOSIS [None]
  - HYPERCOAGULATION [None]
  - SKIN NECROSIS [None]
